FAERS Safety Report 7131284-7 (Version None)
Quarter: 2010Q4

REPORT INFORMATION
  Report Type: 
  Country: None (occurrence: None)
  Receive Date: 20101124
  Receipt Date: 20101124
  Transmission Date: 20110411
  Serious: No
  Sender: FDA-Public Use
  Company Number: None

PATIENT
  Age: 55 Year
  Sex: Male
  Weight: 117.9352 kg

DRUGS (4)
  1. ADVAIR HFA [Suspect]
     Indication: ASTHMA
     Dosage: TWICE DAILY TWICE DAILY INHAL
     Route: 055
     Dates: start: 20061115, end: 20061115
  2. ADVAIR HFA [Suspect]
     Indication: EMPHYSEMA
     Dosage: TWICE DAILY TWICE DAILY INHAL
     Route: 055
     Dates: start: 20061115, end: 20061115
  3. ADVAIR HFA [Suspect]
     Indication: ASTHMA
     Dosage: TWICE DAILY TWICE DAILY INHAL
     Route: 055
     Dates: start: 20101123, end: 20101123
  4. ADVAIR HFA [Suspect]
     Indication: EMPHYSEMA
     Dosage: TWICE DAILY TWICE DAILY INHAL
     Route: 055
     Dates: start: 20101123, end: 20101123

REACTIONS (4)
  - DEVICE FAILURE [None]
  - ENAMEL ANOMALY [None]
  - TEETH BRITTLE [None]
  - TOOTH EROSION [None]
